FAERS Safety Report 4985840-2 (Version None)
Quarter: 2006Q2

REPORT INFORMATION
  Report Type: 
  Country: None (occurrence: None)
  Receive Date: 20060428
  Receipt Date: 20050322
  Transmission Date: 20061013
  Serious: No
  Sender: FDA-Public Use
  Company Number: US-GLAXOSMITHKLINE-A0550870A

PATIENT
  Sex: Female

DRUGS (19)
  1. ZOFRAN [Suspect]
     Indication: PROPHYLAXIS OF NAUSEA AND VOMITING
     Dosage: 8MG PER DAY
     Route: 048
     Dates: start: 20050321
  2. CHEMOTHERAPY [Concomitant]
  3. PHENERGAN HCL [Concomitant]
  4. OXYCONTIN [Concomitant]
  5. AMITRIPTYLIN [Concomitant]
  6. FIORICET [Concomitant]
  7. SINGULAIR [Concomitant]
  8. ZANAFLEX [Concomitant]
  9. MULTI-VITAMIN [Concomitant]
  10. DICLOFENAC SODIUM [Concomitant]
  11. GLUCOSAMINE [Concomitant]
  12. TYLOX [Concomitant]
  13. AMBIEN [Concomitant]
  14. ALLEGRA [Concomitant]
  15. CELEBREX [Concomitant]
  16. PROVENTIL [Concomitant]
  17. PRILOSEC [Concomitant]
  18. ADVAIR DISKUS 100/50 [Concomitant]
  19. CELEXA [Concomitant]

REACTIONS (1)
  - DYSGEUSIA [None]
